FAERS Safety Report 24901280 (Version 1)
Quarter: 2025Q1

REPORT INFORMATION
  Report Type: Spontaneous
  Country: CL (occurrence: CL)
  Receive Date: 20250129
  Receipt Date: 20250129
  Transmission Date: 20250408
  Serious: Yes (Death)
  Sender: PFIZER
  Company Number: CL-PFIZER INC-PV202500011689

PATIENT
  Age: 47 Year
  Sex: Male

DRUGS (2)
  1. BRAFTOVI [Suspect]
     Active Substance: ENCORAFENIB
     Indication: Lung neoplasm malignant
  2. MEKTOVI [Suspect]
     Active Substance: BINIMETINIB
     Indication: Lung neoplasm malignant

REACTIONS (1)
  - Death [Fatal]

NARRATIVE: CASE EVENT DATE: 20241201
